FAERS Safety Report 24989754 (Version 1)
Quarter: 2025Q1

REPORT INFORMATION
  Report Type: Spontaneous
  Country: KR (occurrence: KR)
  Receive Date: 20250220
  Receipt Date: 20250220
  Transmission Date: 20250409
  Serious: Yes (Hospitalization, Other)
  Sender: ASTELLAS
  Company Number: KR-ASTELLAS-2025-AER-009331

PATIENT
  Age: 74 Year
  Sex: Male

DRUGS (2)
  1. PADCEV [Suspect]
     Active Substance: ENFORTUMAB VEDOTIN-EJFV
     Indication: Metastatic carcinoma of the bladder
     Route: 065
     Dates: start: 2024
  2. PADCEV [Suspect]
     Active Substance: ENFORTUMAB VEDOTIN-EJFV
     Route: 065
     Dates: end: 202501

REACTIONS (9)
  - Sepsis [Recovering/Resolving]
  - Neuropathy peripheral [Recovering/Resolving]
  - Mobility decreased [Recovering/Resolving]
  - Speech disorder [Recovering/Resolving]
  - Motor dysfunction [Recovering/Resolving]
  - Monoplegia [Recovering/Resolving]
  - Spinal ligament ossification [Recovering/Resolving]
  - Paraesthesia [Recovering/Resolving]
  - Inflammation [Recovering/Resolving]
